FAERS Safety Report 21378076 (Version 4)
Quarter: 2023Q4

REPORT INFORMATION
  Report Type: Report from Study
  Country: ES (occurrence: ES)
  Receive Date: 20220926
  Receipt Date: 20231106
  Transmission Date: 20240110
  Serious: Yes (Hospitalization)
  Sender: FDA-Public Use
  Company Number: ES-ABBVIE-4130266

PATIENT
  Age: 53 Year
  Sex: Female

DRUGS (21)
  1. RISANKIZUMAB [Suspect]
     Active Substance: RISANKIZUMAB
     Indication: Psoriasis
     Route: 058
     Dates: start: 20210712, end: 20220323
  2. RISANKIZUMAB [Suspect]
     Active Substance: RISANKIZUMAB
     Route: 058
     Dates: start: 20220722
  3. RISANKIZUMAB [Suspect]
     Active Substance: RISANKIZUMAB
     Route: 058
     Dates: start: 20210614, end: 20210712
  4. AMITRIPTYLINE [Concomitant]
     Active Substance: AMITRIPTYLINE
     Indication: Neuralgia
     Route: 048
     Dates: start: 20220307
  5. SIMVASTATIN [Concomitant]
     Active Substance: SIMVASTATIN
     Indication: Dyslipidaemia
     Route: 048
     Dates: start: 20121220
  6. METHOTREXATE [Concomitant]
     Active Substance: METHOTREXATE
     Indication: Psoriatic arthropathy
     Route: 058
     Dates: start: 20190513
  7. ENALAPRIL [Concomitant]
     Active Substance: ENALAPRIL
     Indication: Hypertension
     Route: 048
     Dates: start: 20140826
  8. ASPIRIN [Concomitant]
     Active Substance: ASPIRIN
     Indication: Amaurosis fugax
     Route: 048
     Dates: start: 20200730
  9. CALCIFEDIOL [Concomitant]
     Active Substance: CALCIFEDIOL
     Indication: Hypovitaminosis
     Route: 048
     Dates: start: 20180129
  10. FOLIC ACID [Concomitant]
     Active Substance: FOLIC ACID
     Indication: Psoriatic arthropathy
     Route: 048
     Dates: start: 20190513
  11. PYRIDOXINE [Concomitant]
     Active Substance: PYRIDOXINE
     Indication: Hypovitaminosis
     Route: 048
     Dates: start: 20201216
  12. BRIMONIDINE [Concomitant]
     Active Substance: BRIMONIDINE TARTRATE
     Indication: Amaurosis fugax
     Dosage: 1 VIAL (SINGLE DOSE)
     Route: 047
     Dates: start: 20220307
  13. PREDNICARBATE [Concomitant]
     Active Substance: PREDNICARBATE
     Indication: Psoriasis
     Dosage: CREAM 2.5 MG/G
     Route: 061
     Dates: start: 20220429, end: 20220522
  14. METFORMIN [Concomitant]
     Active Substance: METFORMIN HYDROCHLORIDE
     Indication: Obesity
     Route: 048
     Dates: start: 20230504
  15. AMLODIPINE [Concomitant]
     Active Substance: AMLODIPINE BESYLATE
     Indication: Hypertension
     Route: 048
     Dates: start: 20221101
  16. BETAMETHASONE DIPROPIONATE\CALCIPOTRIENE [Concomitant]
     Active Substance: BETAMETHASONE DIPROPIONATE\CALCIPOTRIENE
     Indication: Psoriasis
     Dosage: CALCIPOTRIOL 50  G/G AND BETAMETHASONE DIPROPIONATE 0.5 MG/G FOAM
     Route: 061
     Dates: start: 20200730
  17. BIMATOPROST\TIMOLOL [Concomitant]
     Active Substance: BIMATOPROST\TIMOLOL
     Indication: Amaurosis fugax
     Dosage: BIMATOPROST 0.03% WITH TIMOLOL 0.5% DROPS
     Route: 047
     Dates: start: 20230403
  18. COAL TAR [Concomitant]
     Active Substance: COAL TAR
     Indication: Psoriasis
     Dosage: 1 APPLICATION
     Route: 061
     Dates: start: 20220429
  19. ENALAPRIL MALEATE\HYDROCHLOROTHIAZIDE [Concomitant]
     Active Substance: ENALAPRIL MALEATE\HYDROCHLOROTHIAZIDE
     Indication: Hypertension
     Dosage: 20 MG/12.5 MG
     Route: 048
     Dates: start: 20221101
  20. BETAMETHASONE;SALICYLIC ACID [Concomitant]
     Indication: Psoriasis
     Dosage: BETAMETHASONE 0.5MG/G + SALICYLIC ACID 20MG/G SOLUTION
     Route: 061
     Dates: start: 20220429
  21. FLUTICASONE PROPIONATE [Concomitant]
     Active Substance: FLUTICASONE PROPIONATE
     Indication: Psoriasis
     Dosage: CREAM 0.5MG/G
     Route: 061
     Dates: start: 20230111, end: 20230121

REACTIONS (1)
  - Chronic obstructive pulmonary disease [Recovered/Resolved with Sequelae]

NARRATIVE: CASE EVENT DATE: 20220530
